FAERS Safety Report 13570980 (Version 1)
Quarter: 2020Q3

REPORT INFORMATION
  Report Type: Report from Study
  Country: CA (occurrence: CA)
  Receive Date: 20170523
  Receipt Date: 20170523
  Transmission Date: 20201104
  Serious: Yes (Death)
  Sender: FDA-Public Use
  Company Number: CA-ASTRAZENECA-2017SE53329

PATIENT
  Age: 71 Year
  Sex: Female

DRUGS (11)
  1. HYDROMORPH CONTIN [Concomitant]
     Active Substance: HYDROMORPHONE
     Dates: start: 20170514
  2. SENOKOT [Concomitant]
     Active Substance: SENNOSIDES
     Dates: start: 20170405
  3. POLYETHYLENE GLYCOL [Concomitant]
     Active Substance: POLYETHYLENE GLYCOLS
     Dates: start: 20170516
  4. FUROSEMIDE. [Concomitant]
     Active Substance: FUROSEMIDE
     Dates: start: 20170421
  5. DURVALUMAB. [Suspect]
     Active Substance: DURVALUMAB
     Indication: NON-SMALL CELL LUNG CANCER
     Dosage: 1500 MG (21 DAY CYCLE)
     Route: 042
     Dates: start: 20170418
  6. VENTOLIN [Concomitant]
     Active Substance: ALBUTEROL SULFATE
     Dates: start: 20170228
  7. TYLENOL EXTRA STRENGTH [Concomitant]
     Active Substance: ACETAMINOPHEN
     Dates: start: 20170228
  8. HYDROMORPHONE [Concomitant]
     Active Substance: HYDROMORPHONE
     Dates: start: 20170503
  9. TREMELIMUMAB. [Suspect]
     Active Substance: TREMELIMUMAB
     Indication: NON-SMALL CELL LUNG CANCER
     Dosage: 75 MG (21 DAY CYCLE)
     Route: 042
     Dates: start: 20170418
  10. TUDERZA [Concomitant]
     Dates: start: 20170228
  11. HYCODAN [HYDROCODONE BITARTRATE] [Concomitant]
     Active Substance: HYDROCODONE BITARTRATE
     Dates: start: 20170405

REACTIONS (1)
  - Respiratory failure [Fatal]

NARRATIVE: CASE EVENT DATE: 20170517
